FAERS Safety Report 9305338 (Version 1)
Quarter: 2013Q2

REPORT INFORMATION
  Report Type: Spontaneous
  Country: IT (occurrence: IT)
  Receive Date: 20130523
  Receipt Date: 20130523
  Transmission Date: 20140414
  Serious: Yes (Other)
  Sender: FDA-Public Use
  Company Number: IT-PFIZER INC-2013157957

PATIENT
  Age: 76 Year
  Sex: Female

DRUGS (7)
  1. AMLODIPINE BESILATE [Suspect]
     Dosage: 1 DF, 1X/DAY
     Route: 048
     Dates: start: 20120329, end: 20130328
  2. METOPROLOL TARTRATE [Suspect]
     Dosage: 1 DF, 1X/DAY
     Route: 048
     Dates: start: 20120329, end: 20130328
  3. OLMESARTAN MEDOXOMIL [Suspect]
     Dosage: 1 DF, 1X/DAY
     Route: 048
     Dates: start: 20120329, end: 20130328
  4. CARVASIN [Suspect]
     Dosage: 5 MG, 1X/DAY
     Route: 048
     Dates: start: 20130328, end: 20130328
  5. XANAX [Concomitant]
  6. LEXOTAN [Concomitant]
  7. ACETYLSALICYLIC ACID [Concomitant]

REACTIONS (2)
  - Headache [Recovering/Resolving]
  - Presyncope [Recovering/Resolving]
